FAERS Safety Report 8832468 (Version 1)
Quarter: 2012Q4

REPORT INFORMATION
  Report Type: Spontaneous
  Country: US (occurrence: None)
  Receive Date: 20121005
  Receipt Date: 20121005
  Transmission Date: 20130627
  Serious: Yes (Hospitalization)
  Sender: FDA-Public Use
  Company Number: None

PATIENT
  Age: 72 Year
  Sex: Male

DRUGS (1)
  1. ALPRAZOLAM [Suspect]
     Indication: DEPRESSION
     Route: 048
     Dates: start: 20120728, end: 20120807

REACTIONS (7)
  - Fall [None]
  - Asthenia [None]
  - Confusional state [None]
  - Hallucination [None]
  - Failure to thrive [None]
  - Mental status changes [None]
  - Blood calcium abnormal [None]
